FAERS Safety Report 8415608-6 (Version None)
Quarter: 2012Q2

REPORT INFORMATION
  Report Type: 
  Country: None (occurrence: None)
  Receive Date: 20120606
  Receipt Date: 20120530
  Transmission Date: 20120825
  Serious: Yes (Hospitalization)
  Sender: FDA-Public Use
  Company Number: IT-BRISTOL-MYERS SQUIBB COMPANY-16649923

PATIENT
  Age: 91 Year
  Sex: Female

DRUGS (5)
  1. COUMADIN [Suspect]
     Indication: ATRIAL FIBRILLATION
     Dosage: INTERRUPTED ON 03OCT2011
     Dates: start: 20110505
  2. LANSOPRAZOLE [Concomitant]
     Dosage: CAPSULES.
  3. HALCION [Concomitant]
     Dosage: TAB
  4. PURSENNID [Concomitant]
  5. LANOXIN [Concomitant]
     Dosage: 1DF: 0,125 TAB

REACTIONS (1)
  - ANAEMIA [None]
